FAERS Safety Report 10458631 (Version 1)
Quarter: 2014Q3

REPORT INFORMATION
  Report Type: Spontaneous
  Country: US (occurrence: None)
  Receive Date: 20140916
  Receipt Date: 20140916
  Transmission Date: 20150326
  Serious: Yes (Other)
  Sender: FDA-Public Use
  Company Number: None

PATIENT
  Age: 29 Year
  Sex: Female
  Weight: 88.45 kg

DRUGS (1)
  1. IMPLANON [Suspect]
     Active Substance: ETONOGESTREL

REACTIONS (14)
  - Nausea [None]
  - Hunger [None]
  - Vaginal odour [None]
  - Weight increased [None]
  - Libido decreased [None]
  - Feeling abnormal [None]
  - Vaginal discharge [None]
  - Alopecia [None]
  - Depression [None]
  - Mood swings [None]
  - Headache [None]
  - Metrorrhagia [None]
  - Dizziness [None]
  - Suicidal ideation [None]

NARRATIVE: CASE EVENT DATE: 20140904
